FAERS Safety Report 23722955 (Version 1)
Quarter: 2024Q2

REPORT INFORMATION
  Report Type: Spontaneous
  Country: DE (occurrence: DE)
  Receive Date: 20240409
  Receipt Date: 20240409
  Transmission Date: 20240716
  Serious: Yes (Other)
  Sender: FDA-Public Use
  Company Number: DE-BAYER-2024A034364

PATIENT
  Age: 27 Year
  Sex: Female
  Weight: 75 kg

DRUGS (1)
  1. KYLEENA [Suspect]
     Active Substance: LEVONORGESTREL
     Indication: Contraception
     Dosage: 17.5?G/DAY
     Route: 015
     Dates: start: 20230915, end: 20240229

REACTIONS (4)
  - Pregnancy with contraceptive device [None]
  - Vaginitis chlamydial [None]
  - Abdominal pain lower [None]
  - Drug ineffective [None]

NARRATIVE: CASE EVENT DATE: 20240101
